FAERS Safety Report 10087288 (Version 2)
Quarter: 2014Q2

REPORT INFORMATION
  Report Type: Spontaneous
  Country: US (occurrence: US)
  Receive Date: 20140418
  Receipt Date: 20140418
  Transmission Date: 20141212
  Serious: Yes (Disabling, Other)
  Sender: FDA-Public Use
  Company Number: US-NAPPMUNDI-USA-2006-0025702

PATIENT
  Age: 28 Year
  Sex: Male

DRUGS (1)
  1. OXYCONTIN TABLETS [Suspect]
     Indication: DRUG ABUSER
     Dosage: UNKNOWN
     Route: 045
     Dates: start: 2004

REACTIONS (10)
  - Polysubstance dependence [Not Recovered/Not Resolved]
  - Drug abuse [Unknown]
  - Malaise [Unknown]
  - Discomfort [Unknown]
  - Drug withdrawal syndrome [Unknown]
  - Pain [Unknown]
  - Diarrhoea [Unknown]
  - Vomiting [Unknown]
  - Tremor [Unknown]
  - Chills [Unknown]
